FAERS Safety Report 25896225 (Version 1)
Quarter: 2025Q4

REPORT INFORMATION
  Report Type: Spontaneous
  Country: EU (occurrence: EU)
  Receive Date: 20251008
  Receipt Date: 20251008
  Transmission Date: 20260117
  Serious: Yes (Hospitalization)
  Sender: TEVA
  Company Number: EU-002147023-NVSC2023FR239921

PATIENT
  Age: 78 Year
  Weight: 69 kg

DRUGS (4)
  1. BISOPROLOL [Suspect]
     Active Substance: BISOPROLOL
     Indication: Product used for unknown indication
     Dosage: UNK
     Route: 065
  2. BUMETANIDE [Suspect]
     Active Substance: BUMETANIDE
     Indication: Product used for unknown indication
     Dosage: UNK
     Route: 065
  3. LISINOPRIL [Suspect]
     Active Substance: LISINOPRIL
     Indication: Product used for unknown indication
     Dosage: UNK
     Route: 065
  4. DESFERAL [Suspect]
     Active Substance: DEFEROXAMINE MESYLATE
     Indication: Haemochromatosis
     Dosage: 500 MG, BID
     Route: 042

REACTIONS (3)
  - Acute kidney injury [Recovering/Resolving]
  - Hyperkalaemia [Unknown]
  - Acidosis [Recovering/Resolving]
